FAERS Safety Report 13405301 (Version 3)
Quarter: 2017Q3

REPORT INFORMATION
  Report Type: Spontaneous
  Country: JP (occurrence: JP)
  Receive Date: 20170405
  Receipt Date: 20170727
  Transmission Date: 20171127
  Serious: Yes (Other)
  Sender: FDA-Public Use
  Company Number: JP-GLAXOSMITHKLINE-JP2017JPN046606

PATIENT
  Age: 23 Year
  Sex: Female

DRUGS (2)
  1. VEGAMOX OPHTHALMIC SOLUTION [Concomitant]
     Dosage: UNK
  2. ZOVIRAX [Suspect]
     Active Substance: ACYCLOVIR
     Indication: OPHTHALMIC HERPES SIMPLEX
     Dosage: UNK
     Route: 047
     Dates: start: 20170323, end: 20170330

REACTIONS (3)
  - Punctate keratitis [Not Recovered/Not Resolved]
  - Drug dispensing error [Unknown]
  - Drug administration error [Unknown]

NARRATIVE: CASE EVENT DATE: 20170323
